FAERS Safety Report 19827863 (Version 1)
Quarter: 2021Q3

REPORT INFORMATION
  Report Type: Spontaneous
  Country: CN (occurrence: CN)
  Receive Date: 20210914
  Receipt Date: 20210914
  Transmission Date: 20211014
  Serious: Yes (Other)
  Sender: FDA-Public Use
  Company Number: CN-Y-MABS THERAPEUTICS-2118340

PATIENT
  Age: 7 Year
  Sex: Female

DRUGS (1)
  1. DANYELZA [Suspect]
     Active Substance: NAXITAMAB-GQGK
     Indication: NEUROBLASTOMA
     Route: 042
     Dates: start: 20210830

REACTIONS (11)
  - Anaphylactic shock [Recovered/Resolved]
  - Rash [Recovered/Resolved]
  - Hypotension [Recovered/Resolved]
  - Hypotension [Recovered/Resolved]
  - Rash [Recovered/Resolved]
  - Heart sounds abnormal [Recovered/Resolved]
  - Anaphylactic shock [Recovered/Resolved]
  - Pain [Recovered/Resolved]
  - Stridor [Recovered/Resolved]
  - Tachycardia [Recovered/Resolved]
  - Tachycardia [Recovered/Resolved]

NARRATIVE: CASE EVENT DATE: 20210830
